FAERS Safety Report 23500356 (Version 2)
Quarter: 2024Q2

REPORT INFORMATION
  Report Type: Report from Study
  Country: MX (occurrence: MX)
  Receive Date: 20240208
  Receipt Date: 20240410
  Transmission Date: 20240716
  Serious: Yes (Death, Hospitalization)
  Sender: FDA-Public Use
  Company Number: MX-002147023-NVSC2023MX200025

PATIENT
  Sex: Male

DRUGS (1)
  1. SCEMBLIX [Suspect]
     Active Substance: ASCIMINIB HYDROCHLORIDE
     Indication: Chronic myeloid leukaemia
     Dosage: 80 MG, QD (40MG  BID, STRENGTH: 40 MG)
     Route: 065
     Dates: start: 20230518

REACTIONS (2)
  - Death [Fatal]
  - Gene mutation identification test positive [Unknown]
